FAERS Safety Report 11426434 (Version 1)
Quarter: 2015Q3

REPORT INFORMATION
  Report Type: Spontaneous
  Country: US (occurrence: US)
  Receive Date: 20150821
  Receipt Date: 20150821
  Transmission Date: 20151125
  Serious: No
  Sender: FDA-Public Use
  Company Number: US-ELI_LILLY_AND_COMPANY-US201207002985

PATIENT
  Sex: Male
  Weight: 72.56 kg

DRUGS (2)
  1. HUMAN INSULIN [Suspect]
     Active Substance: INSULIN HUMAN
     Indication: DIABETES MELLITUS
     Dosage: UNK, UNKNOWN
     Route: 058
  2. HUMULIN R [Suspect]
     Active Substance: INSULIN HUMAN
     Indication: DIABETES MELLITUS
     Dosage: 1 U, OTHER
     Route: 058

REACTIONS (5)
  - Hypoglycaemia [Recovered/Resolved]
  - Wrong technique in product usage process [Not Recovered/Not Resolved]
  - Scar [Unknown]
  - Hypoacusis [Unknown]
  - Nodule [Unknown]
